FAERS Safety Report 4874098-0 (Version None)
Quarter: 2005Q4

REPORT INFORMATION
  Report Type: 
  Country: None (occurrence: None)
  Receive Date: 20051201
  Receipt Date: 20050808
  Transmission Date: 20060501
  Serious: No
  Sender: FDA-Public Use
  Company Number: 2005PV000915

PATIENT
  Age: 65 Year
  Sex: Male
  Weight: 92.9874 kg

DRUGS (9)
  1. BYETTA [Suspect]
     Indication: DIABETES MELLITUS NON-INSULIN-DEPENDENT
     Dosage: 5 MCG; BID; SC
     Route: 058
     Dates: start: 20050802
  2. GLIPIZIDE [Concomitant]
  3. AVANDIA [Concomitant]
  4. HYDROCHLOROTHIAZIDE [Concomitant]
  5. ZETIA [Concomitant]
  6. AVAPRO [Concomitant]
  7. ASPIRIN [Concomitant]
  8. CRESTOR [Concomitant]
  9. FOLTX [Concomitant]

REACTIONS (1)
  - BLOOD GLUCOSE INCREASED [None]
